FAERS Safety Report 20629119 (Version 1)
Quarter: 2022Q1

REPORT INFORMATION
  Report Type: Spontaneous
  Country: None (occurrence: US)
  Receive Date: 20220323
  Receipt Date: 20220323
  Transmission Date: 20220424
  Serious: No
  Sender: FDA-Public Use
  Company Number: US-Breckenridge Pharmaceutical, Inc.-2127056

PATIENT
  Age: 86 Year
  Sex: Female
  Weight: 59.091 kg

DRUGS (6)
  1. AZELASTINE HYDROCHLORIDE [Suspect]
     Active Substance: AZELASTINE HYDROCHLORIDE
     Indication: Nasal congestion
     Route: 045
  2. LOSARTAN [Concomitant]
     Active Substance: LOSARTAN
  3. FLONASE [Concomitant]
     Active Substance: FLUTICASONE PROPIONATE
  4. OTC vitamins [Concomitant]
  5. ASPIRIN [Concomitant]
     Active Substance: ASPIRIN
  6. CLARITIN [Concomitant]
     Active Substance: LORATADINE

REACTIONS (3)
  - Tremor [Unknown]
  - Hypoaesthesia [Unknown]
  - Paraesthesia [Unknown]
